FAERS Safety Report 13211348 (Version 1)
Quarter: 2017Q1

REPORT INFORMATION
  Report Type: Report from Study
  Country: US (occurrence: US)
  Receive Date: 20170210
  Receipt Date: 20170210
  Transmission Date: 20170428
  Serious: No
  Sender: FDA-Public Use
  Company Number: PHEH2013US018596

PATIENT
  Age: 57 Year
  Sex: Female
  Weight: 86.62 kg

DRUGS (10)
  1. ILARIS [Suspect]
     Active Substance: CANAKINUMAB
     Indication: FAMILIAL COLD AUTOINFLAMMATORY SYNDROME
     Dosage: 150 MG, EVERY 8 WEEKS
     Route: 058
     Dates: start: 201306
  2. RANITIDINE. [Concomitant]
     Active Substance: RANITIDINE
     Indication: HYPERSENSITIVITY
     Dosage: 300 MG, BID
     Route: 048
     Dates: start: 20130402, end: 20131127
  3. FOLIC ACID. [Concomitant]
     Active Substance: FOLIC ACID
     Indication: PRODUCT USED FOR UNKNOWN INDICATION
     Dosage: 1 MG, QD
     Route: 048
     Dates: start: 20131210
  4. COLACE [Concomitant]
     Active Substance: DOCUSATE SODIUM
     Indication: CONSTIPATION
     Dosage: 2 DF, QD
     Route: 048
     Dates: start: 20130212
  5. CALTRATE 600+D [Concomitant]
     Indication: BONE DISORDER
     Dosage: UNK UNK, BID
     Route: 048
     Dates: start: 20130212
  6. ZYRTEC [Concomitant]
     Active Substance: CETIRIZINE HYDROCHLORIDE
     Indication: HYPERSENSITIVITY
     Dosage: 10 MG, QD
     Route: 048
     Dates: start: 20131002, end: 20140324
  7. ILARIS [Suspect]
     Active Substance: CANAKINUMAB
     Dosage: 150 MG EVERY 8 WEEKS
     Route: 058
     Dates: start: 20130807, end: 20140122
  8. CELLCEPT [Concomitant]
     Active Substance: MYCOPHENOLATE MOFETIL\MYCOPHENOLATE MOFETIL HYDROCHLORIDE
     Indication: PRODUCT USED FOR UNKNOWN INDICATION
     Dosage: 500 MG, BID
     Route: 048
     Dates: start: 20130301
  9. SINGULAIR [Concomitant]
     Active Substance: MONTELUKAST SODIUM
     Indication: ASTHMA
     Dosage: 10 MG, QD
     Route: 048
     Dates: start: 20130402, end: 20160404
  10. METHOTREXATE. [Concomitant]
     Active Substance: METHOTREXATE
     Indication: FAMILIAL COLD AUTOINFLAMMATORY SYNDROME
     Dosage: 12.5 MG, QW
     Route: 030
     Dates: start: 20130301

REACTIONS (8)
  - Bronchitis [Recovered/Resolved]
  - Hypocalcaemia [Unknown]
  - Cough [Recovered/Resolved]
  - Dyspnoea [Recovered/Resolved]
  - Urticaria [Recovered/Resolved]
  - Nausea [Unknown]
  - Urticaria [Recovered/Resolved]
  - Arthralgia [Unknown]

NARRATIVE: CASE EVENT DATE: 20130606
